FAERS Safety Report 17297327 (Version 1)
Quarter: 2020Q1

REPORT INFORMATION
  Report Type: Spontaneous
  Country: US (occurrence: US)
  Receive Date: 20200122
  Receipt Date: 20200122
  Transmission Date: 20200409
  Serious: No
  Sender: FDA-Public Use
  Company Number: US-AMGEN INC.-USASP2020009448

PATIENT
  Sex: Female

DRUGS (1)
  1. AIMOVIG [Suspect]
     Active Substance: ERENUMAB-AOOE
     Indication: MIGRAINE
     Dosage: UNK (ONE SINGLE DOSE)
     Route: 030
     Dates: start: 20200101

REACTIONS (2)
  - Decreased appetite [Recovered/Resolved]
  - Incorrect route of product administration [Unknown]

NARRATIVE: CASE EVENT DATE: 20200101
